FAERS Safety Report 4450682-3 (Version None)
Quarter: 2004Q3

REPORT INFORMATION
  Report Type: 
  Country: None (occurrence: None)
  Receive Date: 20040914
  Receipt Date: 20040914
  Transmission Date: 20050211
  Serious: Yes (Hospitalization)
  Sender: FDA-Public Use
  Company Number: None

PATIENT
  Age: 83 Year
  Sex: Male
  Weight: 85.5 kg

DRUGS (12)
  1. LISINOPRIL [Suspect]
     Indication: HYPERTENSION
     Dosage: 40 MG   QD   ORAL
     Route: 048
     Dates: start: 20040506, end: 20040617
  2. FUROSEMIDE [Suspect]
     Indication: HYPERTENSION
     Dosage: 80 MG/40   QAM/QPM   ORAL
     Route: 048
     Dates: start: 20040506, end: 20040617
  3. ACETAMINOPHEN [Concomitant]
  4. CLOPIDOGREL BISULFATE [Concomitant]
  5. LANOXIN [Concomitant]
  6. HUMULIN N [Concomitant]
  7. NITROGLYCERIN [Concomitant]
  8. SIMVASTATIN [Concomitant]
  9. TAMSULOSIN [Concomitant]
  10. ASPIRIN [Concomitant]
  11. METOPROLOL SUCCINATE [Concomitant]
  12. FELODIPINE [Concomitant]

REACTIONS (6)
  - ASTHENIA [None]
  - DIZZINESS [None]
  - DYSPNOEA [None]
  - FALL [None]
  - MEMORY IMPAIRMENT [None]
  - URINARY INCONTINENCE [None]
